FAERS Safety Report 24194872 (Version 1)
Quarter: 2024Q3

REPORT INFORMATION
  Report Type: Spontaneous
  Country: GB (occurrence: GB)
  Receive Date: 20240809
  Receipt Date: 20240809
  Transmission Date: 20241017
  Serious: Yes (Other)
  Sender: MYLAN
  Company Number: None

PATIENT
  Sex: Male

DRUGS (2)
  1. FINASTERIDE [Suspect]
     Active Substance: FINASTERIDE
     Indication: Lower urinary tract symptoms
     Dosage: 5 MILLIGRAM, QD (5MG ONCE DAILY)
     Route: 065
     Dates: start: 20240618, end: 20240716
  2. FINASTERIDE [Suspect]
     Active Substance: FINASTERIDE
     Indication: Benign prostatic hyperplasia

REACTIONS (3)
  - Loss of libido [Not Recovered/Not Resolved]
  - Depressed mood [Not Recovered/Not Resolved]
  - Testicular pain [Recovered/Resolved]

NARRATIVE: CASE EVENT DATE: 20240625
